FAERS Safety Report 6209497-8 (Version None)
Quarter: 2009Q2

REPORT INFORMATION
  Report Type: 
  Country: None (occurrence: None)
  Receive Date: 20090601
  Receipt Date: 20090521
  Transmission Date: 20091009
  Serious: Yes (Other)
  Sender: FDA-Public Use
  Company Number: PHHY2009GB20660

PATIENT
  Sex: Female

DRUGS (1)
  1. ACLASTA [Suspect]
     Dosage: UNK
     Dates: start: 20071101

REACTIONS (1)
  - TRANSIENT ISCHAEMIC ATTACK [None]
